FAERS Safety Report 7404999-0 (Version None)
Quarter: 2011Q2

REPORT INFORMATION
  Report Type: 
  Country: None (occurrence: None)
  Receive Date: 20110411
  Receipt Date: 20110215
  Transmission Date: 20111010
  Serious: Yes (Other)
  Sender: FDA-Public Use
  Company Number: US-BAYER-201032913NA

PATIENT
  Age: 47 Year
  Sex: Female
  Weight: 81.633 kg

DRUGS (11)
  1. CYCLOBENZAPRINE [Concomitant]
     Dosage: 10 MG, UNK
  2. HYDROCORTISONE [Concomitant]
     Indication: RASH
  3. DICYCLOMINE [Concomitant]
  4. YASMIN [Suspect]
     Indication: PREMENSTRUAL SYNDROME
     Route: 048
     Dates: start: 20070301
  5. AMBIEN [Concomitant]
     Indication: INSOMNIA
  6. HYDROCORTISONE [Concomitant]
     Indication: VULVOVAGINAL PRURITUS
  7. NASAREL [Concomitant]
     Indication: MULTIPLE ALLERGIES
     Dosage: 29 UNK, UNK
  8. ACETAMINOPHEN W/ CODEINE [Concomitant]
  9. ZYRTEC [Concomitant]
     Indication: MULTIPLE ALLERGIES
  10. FAMOTIDINE [Concomitant]
     Dosage: 40 MG, UNK
  11. ZOLPIDEM [Concomitant]

REACTIONS (3)
  - CHOLECYSTITIS ACUTE [None]
  - CHOLELITHIASIS [None]
  - GALLBLADDER INJURY [None]
